FAERS Safety Report 17694275 (Version 1)
Quarter: 2020Q2

REPORT INFORMATION
  Report Type: Report from Study
  Country: US (occurrence: US)
  Receive Date: 20200422
  Receipt Date: 20200422
  Transmission Date: 20200714
  Serious: Yes (Hospitalization)
  Sender: FDA-Public Use
  Company Number: US-BIOGEN-2020BI00864039

PATIENT
  Age: 68 Year
  Sex: Male
  Weight: 131.66 kg

DRUGS (1)
  1. TECFIDERA [Suspect]
     Active Substance: DIMETHYL FUMARATE
     Indication: MULTIPLE SCLEROSIS
     Route: 048
     Dates: start: 201710

REACTIONS (8)
  - Clostridium difficile infection [Recovered/Resolved with Sequelae]
  - Urinary tract infection [Recovered/Resolved with Sequelae]
  - Coma scale abnormal [Recovered/Resolved with Sequelae]
  - Infection [Recovered/Resolved with Sequelae]
  - Neurogenic bladder [Not Recovered/Not Resolved]
  - Bladder spasm [Recovered/Resolved with Sequelae]
  - Mental status changes [Recovered/Resolved with Sequelae]
  - Blood urine present [Recovered/Resolved with Sequelae]

NARRATIVE: CASE EVENT DATE: 2020
